FAERS Safety Report 5359965-6 (Version None)
Quarter: 2007Q2

REPORT INFORMATION
  Report Type: 
  Country: None (occurrence: None)
  Receive Date: 20070617
  Receipt Date: 20070606
  Transmission Date: 20071010
  Serious: Yes (Death, Hospitalization, Other)
  Sender: FDA-Public Use
  Company Number: JP-JNJFOC-20040402644

PATIENT
  Sex: Female
  Weight: 38 kg

DRUGS (23)
  1. REMICADE [Suspect]
     Route: 041
     Dates: start: 20040315
  2. REMICADE [Suspect]
     Indication: RHEUMATOID ARTHRITIS
     Route: 041
     Dates: start: 20040315
  3. PREDNISOLONE [Suspect]
     Route: 048
     Dates: start: 20040114
  4. PREDNISOLONE [Suspect]
     Route: 048
     Dates: start: 20040114
  5. PREDNISOLONE [Suspect]
     Route: 048
     Dates: start: 20040114
  6. PREDNISOLONE [Suspect]
     Route: 048
     Dates: start: 20040114
  7. PREDNISOLONE [Suspect]
     Indication: RHEUMATOID ARTHRITIS
     Route: 048
     Dates: start: 20040114
  8. METHOTREXATE [Suspect]
     Route: 048
  9. METHOTREXATE [Suspect]
     Indication: DRUG USE FOR UNKNOWN INDICATION
     Route: 048
  10. BREKACIN [Suspect]
  11. BREKACIN [Suspect]
     Indication: CELLULITIS
  12. CEFMETAZON [Suspect]
     Indication: CELLULITIS
  13. VANCOMYCIN HCL [Suspect]
     Indication: CELLULITIS
  14. LORCAM [Concomitant]
     Indication: RHEUMATOID ARTHRITIS
     Route: 065
     Dates: start: 20040212
  15. FOLIAMIN [Concomitant]
     Route: 048
     Dates: start: 20040205
  16. SELBEX [Concomitant]
     Route: 065
     Dates: start: 20040114
  17. FERROMIA [Concomitant]
     Route: 065
     Dates: start: 20040114
  18. PRONON [Concomitant]
     Indication: ARRHYTHMIA
     Route: 065
     Dates: start: 20040114
  19. LASIX [Concomitant]
     Route: 065
     Dates: start: 20040114
  20. LASIX [Concomitant]
     Route: 065
     Dates: start: 20040114
  21. SOLERUMON SR [Concomitant]
     Indication: RHEUMATOID ARTHRITIS
     Route: 048
  22. PLATIBIT [Concomitant]
  23. ARAVA [Concomitant]

REACTIONS (12)
  - CELLULITIS [None]
  - DEAFNESS NEUROSENSORY [None]
  - DECREASED APPETITE [None]
  - DYSPHAGIA [None]
  - INCOHERENT [None]
  - METHICILLIN-RESISTANT STAPHYLOCOCCAL AUREUS TEST POSITIVE [None]
  - PRODUCTIVE COUGH [None]
  - PYREXIA [None]
  - SHOCK [None]
  - THROMBOCYTOPENIA [None]
  - VOMITING [None]
  - WHITE BLOOD CELL COUNT DECREASED [None]
